FAERS Safety Report 12837406 (Version 3)
Quarter: 2018Q1

REPORT INFORMATION
  Report Type: Report from Study
  Country: None (occurrence: DE)
  Receive Date: 20161011
  Receipt Date: 20180313
  Transmission Date: 20180508
  Serious: Yes (Hospitalization)
  Sender: FDA-Public Use
  Company Number: DE-ABBVIE-16K-062-1745115-00

PATIENT
  Age: 61 Year
  Sex: Male

DRUGS (9)
  1. HUMIRA [Suspect]
     Active Substance: ADALIMUMAB
     Indication: RHEUMATOID ARTHRITIS
     Route: 058
     Dates: start: 20140425
  2. HUMIRA [Suspect]
     Active Substance: ADALIMUMAB
     Route: 058
     Dates: start: 20150407, end: 20160920
  3. HUMIRA [Suspect]
     Active Substance: ADALIMUMAB
     Route: 058
     Dates: end: 20180220
  4. HUMIRA [Suspect]
     Active Substance: ADALIMUMAB
     Route: 058
     Dates: start: 20160921, end: 20161101
  5. CLOPIDOGREL [Concomitant]
     Active Substance: CLOPIDOGREL BISULFATE
     Indication: PRODUCT USED FOR UNKNOWN INDICATION
     Dosage: DAILY
     Dates: start: 2014
  6. METAMIZOLE SODIUM [Concomitant]
     Active Substance: METAMIZOLE SODIUM
     Indication: PRODUCT USED FOR UNKNOWN INDICATION
     Dosage: 2/1/1, AS NEEDED
     Dates: start: 2013
  7. CANDESARTAN. [Concomitant]
     Active Substance: CANDESARTAN
     Indication: PRODUCT USED FOR UNKNOWN INDICATION
     Dosage: DAILY,
     Dates: start: 2014
  8. CORTISONE [Concomitant]
     Active Substance: CORTISONE\HYDROCORTISONE
     Indication: PRODUCT USED FOR UNKNOWN INDICATION
     Dosage: DAILY, 4-5 YEARS AGO
  9. L THYROXIN [Concomitant]
     Active Substance: LEVOTHYROXINE SODIUM
     Indication: PRODUCT USED FOR UNKNOWN INDICATION
     Dosage: DAILY, MANY YEARS AGO

REACTIONS (11)
  - Rheumatic disorder [Unknown]
  - Psoriasis [Not Recovered/Not Resolved]
  - Cyst [Not Recovered/Not Resolved]
  - Intervertebral disc protrusion [Recovered/Resolved]
  - Meniscus injury [Recovering/Resolving]
  - Intervertebral disc protrusion [Recovered/Resolved]
  - Meniscus removal [Recovering/Resolving]
  - Arthralgia [Not Recovered/Not Resolved]
  - Osteoporosis [Not Recovered/Not Resolved]
  - Pain [Not Recovered/Not Resolved]
  - Depression [Recovering/Resolving]

NARRATIVE: CASE EVENT DATE: 2016
